FAERS Safety Report 5058401-7 (Version None)
Quarter: 2006Q3

REPORT INFORMATION
  Report Type: 
  Country: None (occurrence: None)
  Receive Date: 20060721
  Receipt Date: 20060608
  Transmission Date: 20061208
  Serious: Yes (Death)
  Sender: FDA-Public Use
  Company Number: JP-ABBOTT-06P-087-0335646-00

PATIENT
  Age: 73 Year
  Sex: Male

DRUGS (8)
  1. NORVIR [Suspect]
     Indication: HIV INFECTION
     Route: 048
     Dates: start: 20050630, end: 20050904
  2. ZIDOVUDINE [Concomitant]
     Indication: HIV INFECTION
     Route: 048
     Dates: start: 20050401, end: 20050629
  3. LAMIVUDINE [Concomitant]
     Indication: HIV INFECTION
     Route: 048
     Dates: start: 20050401, end: 20050904
  4. ABACAVIR [Concomitant]
     Indication: HIV INFECTION
     Route: 048
     Dates: start: 20050401, end: 20050629
  5. EFAVIRENZ [Concomitant]
     Indication: HIV INFECTION
     Route: 048
     Dates: start: 20050401, end: 20050629
  6. ATAZANAVIR [Concomitant]
     Indication: HIV INFECTION
     Route: 048
     Dates: start: 20050630, end: 20050904
  7. TENOFOVIR [Concomitant]
     Indication: HIV INFECTION
     Route: 048
     Dates: start: 20050630, end: 20050904
  8. BACTRIM [Concomitant]
     Indication: ANTIBIOTIC PROPHYLAXIS
     Route: 048
     Dates: start: 20050401, end: 20050904

REACTIONS (3)
  - DECREASED APPETITE [None]
  - METASTASIS [None]
  - NASOPHARYNGEAL CANCER [None]
